FAERS Safety Report 20604224 (Version 1)
Quarter: 2022Q1

REPORT INFORMATION
  Report Type: Spontaneous
  Country: US (occurrence: US)
  Receive Date: 20220316
  Receipt Date: 20220316
  Transmission Date: 20220423
  Serious: Yes (Other)
  Sender: FDA-Public Use
  Company Number: US-SA-SAC20220314001174

PATIENT
  Age: 66 Year
  Sex: Female

DRUGS (1)
  1. ZANTAC [Suspect]
     Active Substance: RANITIDINE HYDROCHLORIDE
     Indication: Dyspepsia
     Dosage: 300 MG, QD
     Route: 065
     Dates: start: 199901, end: 199901

REACTIONS (6)
  - Hepatic cancer [Not Recovered/Not Resolved]
  - Lung neoplasm malignant [Unknown]
  - Disease progression [Not Recovered/Not Resolved]
  - Bone cancer [Unknown]
  - Malignant neoplasm of spinal cord [Unknown]
  - Endocrine neoplasm malignant [Unknown]

NARRATIVE: CASE EVENT DATE: 20190808
